FAERS Safety Report 18119662 (Version 2)
Quarter: 2020Q3

REPORT INFORMATION
  Report Type: Report from Study
  Country: ES (occurrence: ES)
  Receive Date: 20200806
  Receipt Date: 20200902
  Transmission Date: 20201103
  Serious: Yes (Other)
  Sender: FDA-Public Use
  Company Number: ES-PFIZER INC-2020-07467

PATIENT
  Age: 62 Year
  Sex: Female
  Weight: 65 kg

DRUGS (18)
  1. CLEXANE [Concomitant]
     Active Substance: ENOXAPARIN SODIUM
     Indication: FAECES DISCOLOURED
  2. PARACETAMOL [Concomitant]
     Active Substance: ACETAMINOPHEN
     Indication: PYREXIA
     Dosage: UNK
     Dates: start: 20190604
  3. MIRTAZAPINE. [Concomitant]
     Active Substance: MIRTAZAPINE
     Indication: ANTIDEPRESSANT THERAPY
     Dosage: UNK
     Route: 048
     Dates: start: 20191129
  4. PREGABALINA [Concomitant]
     Active Substance: PREGABALIN
     Indication: PAIN IN EXTREMITY
     Dosage: UNK
     Route: 048
     Dates: start: 20170817
  5. DEXAMETASON [DEXAMETHASONE] [Concomitant]
     Active Substance: DEXAMETHASONE
     Indication: PREMEDICATION
     Dosage: UNK
     Route: 042
     Dates: start: 20171019
  6. DEXCHLORPHENIRAMINE [Concomitant]
     Active Substance: DEXCHLORPHENIRAMINE
     Indication: PREMEDICATION
     Dosage: UNK
     Route: 042
     Dates: start: 20171019
  7. CLEXANE [Concomitant]
     Active Substance: ENOXAPARIN SODIUM
     Indication: RENAL VASCULAR THROMBOSIS
     Dosage: UNK
     Route: 058
     Dates: start: 20181019
  8. CLEXANE [Concomitant]
     Active Substance: ENOXAPARIN SODIUM
     Indication: TRAUMATIC RENAL INJURY
  9. DOXICICLINA [DOXYCYCLINE HYCLATE] [Concomitant]
     Indication: RASH
     Dosage: UNK
     Route: 048
     Dates: start: 20190317
  10. CITALOPRAM [Concomitant]
     Active Substance: CITALOPRAM HYDROBROMIDE
     Indication: ANTIDEPRESSANT THERAPY
     Dosage: UNK
     Route: 048
     Dates: start: 20191216
  11. BOTULINUM TOXIN [Concomitant]
     Active Substance: BOTULINUM TOXIN NOS
     Indication: HEMIPARESIS
     Dosage: UNK
     Route: 058
     Dates: start: 20200214
  12. ENCORAFENIB [Suspect]
     Active Substance: ENCORAFENIB
     Indication: COLORECTAL CANCER
     Dosage: 225.00 MG, 1X/DAY
     Route: 048
     Dates: start: 20171019, end: 20200228
  13. PARACETAMOL [Concomitant]
     Active Substance: ACETAMINOPHEN
     Indication: LOWER RESPIRATORY TRACT INFECTION
     Dosage: UNK
     Route: 048
     Dates: start: 20171225
  14. PARACETAMOL [Concomitant]
     Active Substance: ACETAMINOPHEN
     Indication: PRODUCTIVE COUGH
  15. HIDROCORTISONA [HYDROCORTISONE] [Concomitant]
     Active Substance: HYDROCORTISONE
     Indication: NASAL ULCER
     Dosage: UNK
     Route: 061
     Dates: start: 20170725
  16. LEVETIRACETAM. [Concomitant]
     Active Substance: LEVETIRACETAM
     Indication: PROPHYLAXIS
     Dosage: UNK
     Route: 048
     Dates: start: 20191204
  17. MICONAZOL [MICONAZOLE] [Concomitant]
     Active Substance: MICONAZOLE
     Indication: NASAL ULCER
     Dosage: UNK
     Route: 061
     Dates: start: 20170725
  18. CETUXIMAB. [Suspect]
     Active Substance: CETUXIMAB
     Indication: COLORECTAL CANCER
     Dosage: 250.0 MG/M2, WEEKLY
     Route: 042
     Dates: start: 20171019, end: 20200228

REACTIONS (1)
  - Infusion related reaction [Recovered/Resolved]

NARRATIVE: CASE EVENT DATE: 20200228
